FAERS Safety Report 10910797 (Version 1)
Quarter: 2015Q1

REPORT INFORMATION
  Report Type: Spontaneous
  Country: JP (occurrence: JP)
  Receive Date: 20150312
  Receipt Date: 20150312
  Transmission Date: 20150721
  Serious: Yes (Life-Threatening, Hospitalization)
  Sender: FDA-Public Use
  Company Number: JP-PFIZER INC-2015085016

PATIENT
  Age: 75 Year
  Sex: Male

DRUGS (1)
  1. LINEZOLID. [Suspect]
     Active Substance: LINEZOLID
     Indication: STAPHYLOCOCCAL INFECTION
     Dosage: 600 MG, 2X/DAY

REACTIONS (6)
  - Hypothermia [Recovered/Resolved]
  - Coma [Recovered/Resolved]
  - Dyspnoea [Recovered/Resolved]
  - Lactic acidosis [Recovered/Resolved]
  - Respiratory failure [Recovered/Resolved]
  - Hypophosphataemia [Recovered/Resolved]
